FAERS Safety Report 19497112 (Version 1)
Quarter: 2021Q3

REPORT INFORMATION
  Report Type: Spontaneous
  Country: IT (occurrence: IT)
  Receive Date: 20210706
  Receipt Date: 20210706
  Transmission Date: 20211014
  Serious: Yes (Other)
  Sender: FDA-Public Use
  Company Number: IT-TEVA-2021-IT-1928599

PATIENT
  Age: 15 Year
  Sex: Female

DRUGS (9)
  1. CISPLATIN. [Suspect]
     Active Substance: CISPLATIN
     Indication: OSTEOSARCOMA
     Dosage: ACCORDING TO THE ITALIAN ISG/OS?1 OSTEOSARCOMA PROTOCOL; RECEIVED 6 CYCLES
     Route: 065
  2. CYCLOPHOSPHAMIDE. [Suspect]
     Active Substance: CYCLOPHOSPHAMIDE
     Indication: BONE MARROW CONDITIONING REGIMEN
     Route: 065
  3. IFOSFAMIDE. [Suspect]
     Active Substance: IFOSFAMIDE
     Indication: OSTEOSARCOMA
     Dosage: ACCORDING TO THE ITALIAN ISG/OS?1 OSTEOSARCOMA PROTOCOL; RECEIVED 6 CYCLES
     Route: 065
  4. DOXORUBICIN [Suspect]
     Active Substance: DOXORUBICIN
     Indication: OSTEOSARCOMA
     Dosage: ACCORDING TO THE ITALIAN ISG/OS?1 OSTEOSARCOMA PROTOCOL; RECEIVED 6 CYCLES
     Route: 065
  5. CYCLOPHOSPHAMIDE. [Suspect]
     Active Substance: CYCLOPHOSPHAMIDE
     Indication: OSTEOSARCOMA
     Dosage: SECOND?LINE CHEMOTHERAPY
     Route: 065
  6. METHOTREXATE. [Suspect]
     Active Substance: METHOTREXATE
     Indication: OSTEOSARCOMA
     Dosage: ACCORDING TO THE ITALIAN ISG/OS?1 OSTEOSARCOMA PROTOCOL; RECEIVED 6 CYCLES
     Route: 065
  7. ETOPOSIDE. [Suspect]
     Active Substance: ETOPOSIDE
     Indication: OSTEOSARCOMA
     Dosage: SECOND?LINE CHEMOTHERAPY
     Route: 065
  8. THIOTEPA. [Suspect]
     Active Substance: THIOTEPA
     Indication: BONE MARROW CONDITIONING REGIMEN
     Route: 065
  9. IFOSFAMIDE. [Suspect]
     Active Substance: IFOSFAMIDE
     Dosage: SECOND?LINE CHEMOTHERAPY
     Route: 065

REACTIONS (2)
  - Osteosarcoma [Unknown]
  - Drug ineffective [Unknown]
